FAERS Safety Report 6642959-8 (Version None)
Quarter: 2010Q1

REPORT INFORMATION
  Report Type: 
  Country: None (occurrence: None)
  Receive Date: 20100319
  Receipt Date: 20100310
  Transmission Date: 20100710
  Serious: Yes (Other)
  Sender: FDA-Public Use
  Company Number: US-PFIZER INC-2010032057

PATIENT
  Sex: Male
  Weight: 83.9 kg

DRUGS (14)
  1. LIPITOR [Suspect]
     Indication: CORONARY ARTERY DISEASE
     Dosage: 20MG 1X/DAY
     Dates: start: 19930101
  2. CEFUROXIME [Interacting]
     Indication: SINUSITIS
     Dosage: FREQUENCY: 2X/DAY,
     Dates: start: 20100305
  3. TOPROL-XL [Concomitant]
  4. GLUCOPHAGE [Concomitant]
     Indication: DIABETES MELLITUS
  5. COZAAR [Concomitant]
  6. FLOMAX [Concomitant]
  7. LANOXIN [Concomitant]
  8. NEXIUM [Concomitant]
  9. FENOFIBRIC ACID [Concomitant]
  10. WARFARIN [Concomitant]
  11. GABAPENTIN [Concomitant]
  12. SITAGLIPTIN [Concomitant]
  13. NORVASC [Concomitant]
  14. ANDROGEL [Concomitant]

REACTIONS (7)
  - AORTIC VALVE REPLACEMENT [None]
  - CORONARY ARTERY BYPASS [None]
  - DRUG INTERACTION [None]
  - GAIT DISTURBANCE [None]
  - PAIN IN EXTREMITY [None]
  - SINUSITIS [None]
  - STENT PLACEMENT [None]
